FAERS Safety Report 5915548-8 (Version None)
Quarter: 2008Q4

REPORT INFORMATION
  Report Type: 
  Country: None (occurrence: None)
  Receive Date: 20081010
  Receipt Date: 20080729
  Transmission Date: 20090506
  Serious: No
  Sender: FDA-Public Use
  Company Number: A0739874A

PATIENT
  Age: 46 Year
  Sex: Female

DRUGS (8)
  1. TYKERB [Suspect]
     Dosage: 4TAB PER DAY
     Route: 048
     Dates: start: 20080722, end: 20080724
  2. HERCEPTIN [Suspect]
     Route: 042
     Dates: start: 20080601
  3. ZOFRAN [Concomitant]
  4. SYNTHROID [Concomitant]
  5. DILAUDID [Concomitant]
  6. METHADONE HCL [Concomitant]
  7. FENTANYL TRANSDERMAL SYSTEM [Concomitant]
  8. LYRICA [Concomitant]

REACTIONS (8)
  - ABDOMINAL PAIN UPPER [None]
  - ANOREXIA [None]
  - BACK PAIN [None]
  - BONE PAIN [None]
  - CHEST DISCOMFORT [None]
  - DIARRHOEA [None]
  - ERUCTATION [None]
  - VOMITING [None]
